FAERS Safety Report 4617458-5 (Version None)
Quarter: 2005Q1

REPORT INFORMATION
  Report Type: 
  Country: None (occurrence: None)
  Receive Date: 20050324
  Receipt Date: 20050125
  Transmission Date: 20050727
  Serious: Yes (Other)
  Sender: FDA-Public Use
  Company Number: JP-SOLVAY-00305000226

PATIENT
  Age: 69 Year
  Sex: Male

DRUGS (17)
  1. TERRANAS [Concomitant]
     Indication: MIGRAINE
     Dosage: DAILY DOSE: 100 MILLIGRAM(S)
     Route: 048
     Dates: start: 20040223, end: 20040906
  2. TERRANAS [Concomitant]
     Dosage: DAILY DOSE: 20 MILLIGRAM(S)
     Route: 048
     Dates: start: 20040906
  3. LUVOX [Suspect]
     Indication: DEPRESSION
     Dosage: DAILY DOSE: 50 MILLIGRAM(S)
     Route: 048
     Dates: start: 20030908, end: 20040426
  4. LUVOX [Interacting]
     Dosage: DAILY DOSE: 100 MILLIGRAM(S)
     Route: 048
     Dates: start: 20040426
  5. TERNELIN [Interacting]
     Indication: CERVICOBRACHIAL SYNDROME
     Dosage: DAILY DOSE: 3 DOSAGE FORM
     Route: 048
     Dates: start: 20030818, end: 20050106
  6. DEPAS [Concomitant]
     Indication: PSYCHOSOMATIC DISEASE
     Dosage: DAILY DOSE: 1 MILLIGRAM(S)
     Route: 048
     Dates: start: 20030818, end: 20040423
  7. DEPAS [Concomitant]
     Dosage: DAILY DOSE: 1.5 MILLIGRAM(S)
     Route: 048
     Dates: start: 20040423, end: 20040621
  8. DEPAS [Concomitant]
     Dosage: DAILY DOSE: 3 MILLIGRAM(S)
     Route: 048
     Dates: start: 20040621
  9. AMLODIN [Concomitant]
     Indication: HYPERTENSION
     Dosage: DAILY DOSE: 5 MILLIGRAM(S)
     Route: 048
     Dates: start: 20030325, end: 20031026
  10. AMLODIN [Concomitant]
     Dosage: DAILY DOSE: 2.5 MILLIGRAM(S)
     Route: 048
     Dates: start: 20031219, end: 20040108
  11. AMLODIN [Concomitant]
     Dosage: DAILY DOSE: 5 MILLIGRAM(S)
     Route: 048
     Dates: start: 20040109, end: 20040610
  12. AMLODIN [Concomitant]
     Dosage: DAILY DOSE: 25 MILLIGRAM(S)
     Route: 048
     Dates: start: 20040611, end: 20041001
  13. NOVAROK [Concomitant]
     Indication: HYPERTENSION
     Dosage: DAILY DOSE: 1 DOSAGE FORM
     Route: 048
     Dates: start: 20030325, end: 20031019
  14. NOVAROK [Concomitant]
     Dosage: DAILY DOSE: 1 DOSAGE FORM
     Route: 048
     Dates: start: 20031107, end: 20031113
  15. NULOTAN [Concomitant]
     Indication: HYPERTENSION
     Dosage: DAILY DOSE: 25 MILLIGRAM(S)
     Route: 048
     Dates: start: 20031125, end: 20031127
  16. NULOTAN [Concomitant]
     Dosage: DAILY DOSE: 50 MILLIGRAM(S)
     Route: 048
     Dates: start: 20031128, end: 20040304
  17. DIOVAN [Concomitant]
     Indication: HYPERTENSION
     Dosage: DAILY DOSE: 80 MILLIGRAM(S)
     Route: 048
     Dates: start: 20040305

REACTIONS (2)
  - DRUG INTERACTION [None]
  - SYNCOPE [None]
